FAERS Safety Report 4448324-6 (Version None)
Quarter: 2004Q3

REPORT INFORMATION
  Report Type: 
  Country: None (occurrence: None)
  Receive Date: 20040913
  Receipt Date: 20040819
  Transmission Date: 20050211
  Serious: No
  Sender: FDA-Public Use
  Company Number: 2004AP04448

PATIENT
  Age: 35 Year
  Sex: Female
  Weight: 85 kg

DRUGS (16)
  1. ANAPEINE [Suspect]
     Indication: EPIDURAL ANAESTHESIA
     Dates: start: 20040415
  2. MARCAINE [Concomitant]
  3. ATROPINE SULFATE [Concomitant]
  4. ATARAX [Concomitant]
  5. EPHEDRINE SUL CAP [Concomitant]
  6. ATONIN [Concomitant]
  7. LACTEC [Concomitant]
  8. LASIX [Concomitant]
  9. BLUTAL [Concomitant]
  10. CEFMETAZON [Concomitant]
  11. CAPROCIN [Concomitant]
  12. ADONA [Concomitant]
  13. PANTOL [Concomitant]
  14. VITAMIN C [Concomitant]
  15. NEOLAMIN [Concomitant]
  16. SOLITA T [Concomitant]

REACTIONS (3)
  - HYPOAESTHESIA [None]
  - POST PROCEDURAL COMPLICATION [None]
  - SENSORY DISTURBANCE [None]
